FAERS Safety Report 19269472 (Version 1)
Quarter: 2021Q2

REPORT INFORMATION
  Report Type: Spontaneous
  Country: US (occurrence: US)
  Receive Date: 20210517
  Receipt Date: 20210517
  Transmission Date: 20210717
  Serious: No
  Sender: FDA-Public Use
  Company Number: None

PATIENT
  Age: 60 Year
  Sex: Male
  Weight: 79.38 kg

DRUGS (1)
  1. ESCITALOPRAM (GENERIC LEXAPRO) 20MG [Suspect]
     Active Substance: ESCITALOPRAM OXALATE
     Indication: MAJOR DEPRESSION
     Dosage: ?          QUANTITY:20 MG MILLIGRAM(S);?
     Route: 048
     Dates: start: 20200501

REACTIONS (2)
  - Gastrooesophageal reflux disease [None]
  - Product substitution issue [None]

NARRATIVE: CASE EVENT DATE: 20210316
